FAERS Safety Report 7077760-7 (Version None)
Quarter: 2010Q4

REPORT INFORMATION
  Report Type: 
  Country: None (occurrence: None)
  Receive Date: 20101101
  Receipt Date: 20101018
  Transmission Date: 20110411
  Serious: Yes (Hospitalization)
  Sender: FDA-Public Use
  Company Number: PHHY2010JP66651

PATIENT
  Age: 64 Year
  Sex: Female

DRUGS (3)
  1. VOLTAREN [Suspect]
     Indication: RHEUMATOID ARTHRITIS
     Dosage: UNK
     Route: 048
  2. METHOTREXATE [Suspect]
     Indication: RHEUMATOID ARTHRITIS
     Dosage: UNK
  3. PREDNISOLONE [Concomitant]
     Indication: RHEUMATOID ARTHRITIS
     Dosage: UNK

REACTIONS (11)
  - ABDOMINAL PAIN [None]
  - DIARRHOEA [None]
  - DISSEMINATED INTRAVASCULAR COAGULATION [None]
  - ENTERITIS [None]
  - FEBRILE NEUTROPENIA [None]
  - GASTROINTESTINAL ULCER [None]
  - INTESTINAL DILATATION [None]
  - PAIN [None]
  - PYREXIA [None]
  - TENDERNESS [None]
  - WHITE BLOOD CELL COUNT DECREASED [None]
